FAERS Safety Report 7930968-8 (Version None)
Quarter: 2011Q4

REPORT INFORMATION
  Report Type: 
  Country: None (occurrence: None)
  Receive Date: 20111121
  Receipt Date: 20111108
  Transmission Date: 20120403
  Serious: Yes (Other)
  Sender: FDA-Public Use
  Company Number: CA-ROCHE-1011457

PATIENT
  Sex: Female

DRUGS (1)
  1. ACCUTANE [Suspect]
     Indication: PRODUCT USED FOR UNKNOWN INDICATION
     Route: 048
     Dates: start: 20070101

REACTIONS (3)
  - SUICIDAL IDEATION [None]
  - CYSTITIS INTERSTITIAL [None]
  - GASTROOESOPHAGEAL REFLUX DISEASE [None]
